FAERS Safety Report 16564062 (Version 1)
Quarter: 2019Q3

REPORT INFORMATION
  Report Type: Other
  Country: CA (occurrence: CA)
  Receive Date: 20190712
  Receipt Date: 20190712
  Transmission Date: 20191004
  Serious: Yes (Life-Threatening, Hospitalization, Other)
  Sender: FDA-Public Use
  Company Number: CA-APOTEX-2019AP017881

PATIENT
  Age: 82 Year
  Sex: Female

DRUGS (17)
  1. DULOXETINE. [Suspect]
     Active Substance: DULOXETINE
     Indication: PHAGOPHOBIA
  2. LORAZEPAM. [Suspect]
     Active Substance: LORAZEPAM
     Indication: DYSPHAGIA
     Dosage: 10 MG, UNK
     Route: 065
  3. RISPERIDONE. [Suspect]
     Active Substance: RISPERIDONE
     Indication: CHOKING SENSATION
  4. MIRTAZAPINE. [Suspect]
     Active Substance: MIRTAZAPINE
     Indication: CHOKING SENSATION
     Dosage: UNK
     Route: 065
  5. DULOXETINE. [Suspect]
     Active Substance: DULOXETINE
     Indication: DYSPHAGIA
     Dosage: 60 MG, UNK
     Route: 065
  6. OLANZAPINE. [Suspect]
     Active Substance: OLANZAPINE
     Indication: DYSPHAGIA
     Dosage: 10 MG, UNK
     Route: 065
  7. OLANZAPINE. [Suspect]
     Active Substance: OLANZAPINE
     Indication: CHOKING SENSATION
  8. OLANZAPINE. [Suspect]
     Active Substance: OLANZAPINE
     Indication: PHAGOPHOBIA
  9. DULOXETINE. [Suspect]
     Active Substance: DULOXETINE
     Indication: CHOKING SENSATION
     Dosage: UNK, UNKNOWN
     Route: 065
  10. VENLAFAXINE [Suspect]
     Active Substance: VENLAFAXINE HYDROCHLORIDE
     Indication: PHAGOPHOBIA
  11. MIRTAZAPINE. [Suspect]
     Active Substance: MIRTAZAPINE
     Indication: DYSPHAGIA
     Dosage: 45 MG, UNK
     Route: 065
  12. MIRTAZAPINE. [Suspect]
     Active Substance: MIRTAZAPINE
     Indication: PHAGOPHOBIA
  13. LORAZEPAM. [Suspect]
     Active Substance: LORAZEPAM
     Indication: CHOKING SENSATION
  14. LORAZEPAM. [Suspect]
     Active Substance: LORAZEPAM
     Indication: PHAGOPHOBIA
  15. RISPERIDONE. [Suspect]
     Active Substance: RISPERIDONE
     Indication: DYSPHAGIA
     Dosage: UNK
     Route: 065
  16. RISPERIDONE. [Suspect]
     Active Substance: RISPERIDONE
     Indication: PHAGOPHOBIA
  17. VENLAFAXINE [Suspect]
     Active Substance: VENLAFAXINE HYDROCHLORIDE
     Indication: CHOKING SENSATION
     Dosage: UNK
     Route: 065

REACTIONS (3)
  - Therapeutic product effect incomplete [Unknown]
  - Tardive dyskinesia [Unknown]
  - Drug ineffective [Unknown]
